FAERS Safety Report 7458491-8 (Version None)
Quarter: 2011Q2

REPORT INFORMATION
  Report Type: 
  Country: None (occurrence: None)
  Receive Date: 20110504
  Receipt Date: 20110503
  Transmission Date: 20111010
  Serious: Yes (Other)
  Sender: FDA-Public Use
  Company Number: US-ABBOTT-11P-163-0705095-00

PATIENT
  Sex: Male
  Weight: 76.726 kg

DRUGS (6)
  1. FLEXERIL [Concomitant]
     Indication: PAIN
     Dosage: AS NEEDED
  2. MOTRIN [Concomitant]
     Indication: PAIN
     Dosage: PRN
  3. MEDROL [Concomitant]
     Indication: PRODUCT USED FOR UNKNOWN INDICATION
     Dates: start: 20100801, end: 20100801
  4. HUMIRA [Suspect]
     Indication: ANKYLOSING SPONDYLITIS
     Dates: start: 20060101, end: 20110201
  5. VICODIN [Concomitant]
     Indication: PAIN
     Dosage: 650MG X 2 TABLETS, 1/2 TABLET AT A TIME
  6. HUMIRA [Suspect]
     Indication: SACROILIITIS

REACTIONS (3)
  - SKIN REACTION [None]
  - HYPERAESTHESIA [None]
  - TUBERCULIN TEST POSITIVE [None]
